FAERS Safety Report 8365043-4 (Version None)
Quarter: 2012Q2

REPORT INFORMATION
  Report Type: 
  Country: None (occurrence: None)
  Receive Date: 20120516
  Receipt Date: 20120511
  Transmission Date: 20120825
  Serious: Yes (Hospitalization)
  Sender: FDA-Public Use
  Company Number: JP-GLAXOSMITHKLINE-B0801472A

PATIENT
  Age: 71 Year
  Sex: Male

DRUGS (1)
  1. VALTREX [Suspect]
     Indication: HERPES ZOSTER
     Dosage: 3000MG PER DAY
     Dates: start: 20120424, end: 20120429

REACTIONS (5)
  - DYSARTHRIA [None]
  - NEUROLOGICAL SYMPTOM [None]
  - RENAL IMPAIRMENT [None]
  - ANURIA [None]
  - ASTHENIA [None]
